FAERS Safety Report 24184097 (Version 1)
Quarter: 2024Q3

REPORT INFORMATION
  Report Type: Spontaneous
  Country: US (occurrence: None)
  Receive Date: 20240806
  Receipt Date: 20240806
  Transmission Date: 20241016
  Serious: Yes (Hospitalization)
  Sender: Public
  Company Number: None

PATIENT
  Age: 73 Year
  Sex: Female
  Weight: 55.7 kg

DRUGS (1)
  1. TECLISTAMAB [Suspect]
     Active Substance: TECLISTAMAB
     Indication: Plasma cell myeloma
     Dosage: 85.2 MG ONCE SUBCURANEOUS ?
     Route: 058
     Dates: start: 20240326, end: 20240621

REACTIONS (4)
  - Cerebrovascular accident [None]
  - Brain empyema [None]
  - Brain abscess [None]
  - CNS ventriculitis [None]

NARRATIVE: CASE EVENT DATE: 20240717
